FAERS Safety Report 6121563-4 (Version None)
Quarter: 2009Q1

REPORT INFORMATION
  Report Type: 
  Country: None (occurrence: None)
  Receive Date: 20090313
  Receipt Date: 20090226
  Transmission Date: 20090719
  Serious: Yes (Hospitalization)
  Sender: FDA-Public Use
  Company Number: 2009S1003541

PATIENT
  Age: 74 Year
  Sex: Female

DRUGS (9)
  1. TORSEMIDE [Suspect]
     Indication: HYPERTENSION
     Dosage: 10 MG;DAILY;ORAL
     Route: 048
     Dates: start: 20080825, end: 20080920
  2. BISOPROLOL FUMARATE [Suspect]
     Indication: HYPERTENSION
     Dosage: 7 5 MG; TWICE A DAY
  3. ENALAPRIL MALEATE [Suspect]
     Indication: RENAL FAILURE
     Dosage: 10 MG; DAILY; ORAL
     Route: 048
     Dates: start: 20080401
  4. XIPAMIDE (XIPAMIDE) [Suspect]
     Indication: HYPERTENSION
     Dosage: 20 MG; DAILY; ORAL
     Route: 048
     Dates: start: 20080401, end: 20080911
  5. FALITHROM [Concomitant]
  6. METHOTREXATE SODIUM [Concomitant]
  7. OMEPRAZOLE [Concomitant]
  8. PREDNISOLONE [Concomitant]
  9. SIMVAHEXAL [Concomitant]

REACTIONS (2)
  - HYPOTENSION [None]
  - POTENTIATING DRUG INTERACTION [None]
